FAERS Safety Report 6226145-1 (Version None)
Quarter: 2009Q2

REPORT INFORMATION
  Report Type: 
  Country: None (occurrence: None)
  Receive Date: 20090612
  Receipt Date: 20080430
  Transmission Date: 20091009
  Serious: Yes (Other)
  Sender: FDA-Public Use
  Company Number: EC-PFIZER INC-2008037900

PATIENT
  Age: 50 Year

DRUGS (2)
  1. AZITHROMYCIN [Suspect]
     Indication: BRONCHITIS
     Dosage: UNK
     Route: 048
  2. ARCOXIA [Concomitant]
     Route: 048
     Dates: start: 20080425

REACTIONS (3)
  - EYE PRURITUS [None]
  - EYELID OEDEMA [None]
  - TONGUE OEDEMA [None]
